FAERS Safety Report 8386418-3 (Version None)
Quarter: 2012Q2

REPORT INFORMATION
  Report Type: 
  Country: None (occurrence: None)
  Receive Date: 20120525
  Receipt Date: 20120522
  Transmission Date: 20120825
  Serious: Yes (Other)
  Sender: FDA-Public Use
  Company Number: US-PFIZER INC-2012123912

PATIENT
  Sex: Female

DRUGS (4)
  1. LYRICA [Suspect]
     Dosage: 50 MG, 2X/DAY
     Dates: start: 20101001
  2. ACETYLSALICYLIC ACID [Concomitant]
     Indication: CARDIAC DISORDER
     Dosage: 81 MG, DAILY
  3. LYRICA [Suspect]
     Dosage: 100 MG, 3X/DAY
     Dates: start: 20110101
  4. LYRICA [Suspect]
     Indication: PAIN
     Dosage: 75 MG, 2X/DAY

REACTIONS (9)
  - BACK PAIN [None]
  - ACTIVITIES OF DAILY LIVING IMPAIRED [None]
  - INTERVERTEBRAL DISC DISPLACEMENT [None]
  - PAIN [None]
  - BACK INJURY [None]
  - CHEST PAIN [None]
  - DYSPNOEA [None]
  - NERVE COMPRESSION [None]
  - CONSTIPATION [None]
